FAERS Safety Report 14379660 (Version 1)
Quarter: 2018Q1

REPORT INFORMATION
  Report Type: Spontaneous
  Country: IT (occurrence: IT)
  Receive Date: 20180112
  Receipt Date: 20180112
  Transmission Date: 20180509
  Serious: Yes (Hospitalization)
  Sender: FDA-Public Use
  Company Number: IT-CIPLA LTD.-2018IT00298

PATIENT

DRUGS (3)
  1. SERTRALINE [Suspect]
     Active Substance: SERTRALINE HYDROCHLORIDE
     Indication: DEPRESSION
     Dosage: 50 MG, DAILY
     Route: 048
     Dates: start: 20170705, end: 20170708
  2. RAMIPRIL. [Concomitant]
     Active Substance: RAMIPRIL
     Dosage: UNK
     Route: 065
  3. LEVOPRAID (LEVOSULPIRIDE) [Suspect]
     Active Substance: LEVOSULPIRIDE
     Indication: DEPRESSION
     Dosage: 2 DF, DAILY
     Route: 048
     Dates: start: 20170705, end: 20170708

REACTIONS (3)
  - Somnolence [Unknown]
  - Dysarthria [Unknown]
  - Vertigo [Unknown]

NARRATIVE: CASE EVENT DATE: 20170706
